APPROVED DRUG PRODUCT: EFUDEX
Active Ingredient: FLUOROURACIL
Strength: 5% **Federal Register determination that product was not discontinued or withdrawn for safety or effectiveness reasons**
Dosage Form/Route: SOLUTION;TOPICAL
Application: N016831 | Product #002
Applicant: EXTROVIS AG
Approved: Approved Prior to Jan 1, 1982 | RLD: Yes | RS: No | Type: DISCN